FAERS Safety Report 14822677 (Version 1)
Quarter: 2018Q2

REPORT INFORMATION
  Report Type: Spontaneous
  Country: JP (occurrence: JP)
  Receive Date: 20180427
  Receipt Date: 20180427
  Transmission Date: 20180711
  Serious: Yes (Death, Hospitalization, Other)
  Sender: FDA-Public Use
  Company Number: JP-009507513-1707JPN000970J

PATIENT
  Age: 67 Year
  Sex: Male
  Weight: 78 kg

DRUGS (13)
  1. KEYTRUDA [Suspect]
     Active Substance: PEMBROLIZUMAB
     Indication: LUNG ADENOCARCINOMA
     Dosage: 200 MG, Q3W
     Route: 041
     Dates: start: 20170628, end: 20170719
  2. LANSOPRAZOLE OD [Concomitant]
     Active Substance: LANSOPRAZOLE
     Dosage: 15 MG, QD
     Route: 048
     Dates: end: 20170816
  3. CARVEDILOL. [Concomitant]
     Active Substance: CARVEDILOL
     Dosage: 2.5 MG, BID
     Route: 048
     Dates: end: 20170816
  4. VASOLATOR [Concomitant]
     Dosage: 27 MG, QD
     Route: 062
     Dates: end: 20170816
  5. ZOMETA [Concomitant]
     Active Substance: ZOLEDRONIC ACID
     Dosage: 3.5 MG, QD
     Route: 041
     Dates: start: 20170719
  6. GLACTIV [Concomitant]
     Active Substance: SITAGLIPTIN
     Dosage: 50 MG, QD
     Route: 048
     Dates: end: 20170816
  7. PANVITAN [Concomitant]
     Dosage: 1 G, QD
     Route: 048
     Dates: end: 20170706
  8. SODIUM CHLORIDE. [Concomitant]
     Active Substance: SODIUM CHLORIDE
     Dosage: 100 ML, QD
     Route: 041
     Dates: start: 20170719
  9. ZOMETA [Concomitant]
     Active Substance: ZOLEDRONIC ACID
     Indication: METASTASES TO BONE
     Dosage: 3.5 MG, QD
     Route: 041
     Dates: start: 20170629
  10. VITAMEDIN [Concomitant]
     Active Substance: CYANOCOBALAMIN\PYRIDOXINE HYDROCHLORIDE\THIAMINE
     Dosage: 1 DF, QD
     Route: 042
     Dates: start: 20170630, end: 20170816
  11. TWINPAL [Concomitant]
     Active Substance: AMINO ACIDS\CARBOHYDRATES\ELECTROLYTES NOS\VITAMINS
     Dosage: 500 ML, QD
     Route: 051
     Dates: start: 20170630, end: 20170807
  12. GLUFAST [Concomitant]
     Active Substance: MITIGLINIDE
     Dosage: 10 MG, TID
     Route: 048
     Dates: end: 20170816
  13. SODIUM CHLORIDE. [Concomitant]
     Active Substance: SODIUM CHLORIDE
     Indication: METASTASES TO BONE
     Dosage: 100 ML, QD
     Route: 041
     Dates: start: 20170628

REACTIONS (6)
  - Pyrexia [Not Recovered/Not Resolved]
  - Pain [Unknown]
  - Decreased appetite [Unknown]
  - Vomiting [Unknown]
  - Interstitial lung disease [Fatal]
  - Pyrexia [Not Recovered/Not Resolved]

NARRATIVE: CASE EVENT DATE: 201706
